FAERS Safety Report 14352910 (Version 1)
Quarter: 2018Q1

REPORT INFORMATION
  Report Type: Other
  Country: CA (occurrence: CA)
  Receive Date: 20180104
  Receipt Date: 20180104
  Transmission Date: 20180509
  Serious: Yes (Life-Threatening)
  Sender: FDA-Public Use
  Company Number: CN-ALSI-201700480

PATIENT
  Age: 56 Year
  Sex: Female

DRUGS (1)
  1. 100% OXYGEN [Suspect]
     Active Substance: OXYGEN
     Indication: CARBON MONOXIDE POISONING
     Route: 055

REACTIONS (2)
  - Shock [Recovered/Resolved]
  - Acute pulmonary oedema [Recovered/Resolved]
